FAERS Safety Report 25755045 (Version 1)
Quarter: 2025Q3

REPORT INFORMATION
  Report Type: Spontaneous
  Country: US (occurrence: US)
  Receive Date: 20250903
  Receipt Date: 20250903
  Transmission Date: 20251021
  Serious: No
  Sender: SANDOZ
  Company Number: US-002147023-NVSC2024US148723

PATIENT
  Age: 4 Month
  Sex: Male

DRUGS (3)
  1. ONASEMNOGENE ABEPARVOVEC [Suspect]
     Active Substance: ONASEMNOGENE ABEPARVOVEC
     Indication: Spinal muscular atrophy
     Route: 065
     Dates: start: 20230516
  2. PREDNISOLONE [Suspect]
     Active Substance: PREDNISOLONE
     Indication: Spinal muscular atrophy
     Route: 065
     Dates: start: 20230515, end: 20230531
  3. PREDNISOLONE [Suspect]
     Active Substance: PREDNISOLONE
     Route: 065
     Dates: start: 20230531, end: 20230726

REACTIONS (4)
  - Respiratory syncytial virus infection [Recovered/Resolved]
  - Hypertension [Recovered/Resolved]
  - Platelet count increased [Recovered/Resolved]
  - Aspartate aminotransferase increased [Recovered/Resolved]

NARRATIVE: CASE EVENT DATE: 20230531
